FAERS Safety Report 13095164 (Version 1)
Quarter: 2017Q1

REPORT INFORMATION
  Report Type: Other
  Country: KP (occurrence: KP)
  Receive Date: 20170107
  Receipt Date: 20170107
  Transmission Date: 20170428
  Serious: Yes (Hospitalization)
  Sender: FDA-Public Use
  Company Number: KP-GRANULES INDIA LIMITED-1061707

PATIENT
  Age: 7 Month

DRUGS (1)
  1. IBUPROFEN. [Suspect]
     Active Substance: IBUPROFEN
     Indication: PYREXIA

REACTIONS (3)
  - Pyrexia [Recovering/Resolving]
  - Vanishing bile duct syndrome [Recovering/Resolving]
  - Toxic epidermal necrolysis [Recovering/Resolving]
